FAERS Safety Report 8572925-7 (Version None)
Quarter: 2012Q3

REPORT INFORMATION
  Report Type: 
  Country: None (occurrence: None)
  Receive Date: 20120806
  Receipt Date: 20120726
  Transmission Date: 20120928
  Serious: Yes (Hospitalization)
  Sender: FDA-Public Use
  Company Number: US-ASTRAZENECA-2012SE53063

PATIENT
  Age: 45 Year
  Sex: Male

DRUGS (6)
  1. IBUPROFEN [Concomitant]
  2. CRESTOR [Suspect]
     Indication: DYSLIPIDAEMIA
     Route: 048
     Dates: start: 20090101, end: 20120623
  3. LUNESTA [Suspect]
     Indication: INSOMNIA
     Route: 048
     Dates: start: 20111001
  4. ALCOHOL [Suspect]
     Dosage: 6-8 BEERS PER DAY 5 OUT OF 7 DAYS PER WEEK.
  5. ALCOHOL [Suspect]
  6. LUNESTA [Suspect]
     Route: 048
     Dates: end: 20120701

REACTIONS (13)
  - PALPITATIONS [None]
  - ASTHENIA [None]
  - MYOPATHY [None]
  - BLOOD PRESSURE INCREASED [None]
  - HEADACHE [None]
  - UHTHOFF'S PHENOMENON [None]
  - INTERVERTEBRAL DISC DEGENERATION [None]
  - CHEST PAIN [None]
  - PARAESTHESIA [None]
  - HYPOAESTHESIA [None]
  - BLOOD CREATINE PHOSPHOKINASE INCREASED [None]
  - MUSCULAR WEAKNESS [None]
  - SINUS TACHYCARDIA [None]
